FAERS Safety Report 19094065 (Version 1)
Quarter: 2021Q2

REPORT INFORMATION
  Report Type: Spontaneous
  Country: CN (occurrence: CN)
  Receive Date: 20210405
  Receipt Date: 20210405
  Transmission Date: 20210717
  Serious: Yes (Other)
  Sender: FDA-Public Use
  Company Number: NVSC2021CN076441

PATIENT
  Age: 47 Year
  Sex: Female
  Weight: 66 kg

DRUGS (6)
  1. SANDIMMUN [Suspect]
     Active Substance: CYCLOSPORINE
     Indication: PRODUCT USED FOR UNKNOWN INDICATION
     Dosage: (5 ML: 250 MG) 180 MG
     Route: 041
     Dates: start: 20181224
  2. FLUDARABINE [Concomitant]
     Active Substance: FLUDARABINE PHOSPHATE
     Indication: PRODUCT USED FOR UNKNOWN INDICATION
     Dosage: 50 MG (FIRST DAY TO THE FIFTH DAY)
     Route: 065
     Dates: start: 20181221
  3. CYCLOPHOSPHAMIDE. [Concomitant]
     Active Substance: CYCLOPHOSPHAMIDE
     Indication: PRODUCT USED FOR UNKNOWN INDICATION
     Dosage: 4000 MG (ON THE SIXTH DAY)
     Route: 048
  4. SODIUM CHLORIDE. [Concomitant]
     Active Substance: SODIUM CHLORIDE
     Indication: PRODUCT USED FOR UNKNOWN INDICATION
     Dosage: 500 ML AT A DRIPPING RATE OF 28 ML/H
     Route: 065
  5. ANTITHYMOCYTE IMMUNOGLOBULIN (RABBIT) [Concomitant]
     Active Substance: LAPINE T-LYMPHOCYTE IMMUNE GLOBULIN
     Indication: PRODUCT USED FOR UNKNOWN INDICATION
     Dosage: 500 MG (ON THE EIGHTH DAY)
     Route: 065
  6. METHYLPREDNISOLONE. [Concomitant]
     Active Substance: METHYLPREDNISOLONE
     Indication: PRODUCT USED FOR UNKNOWN INDICATION
     Dosage: 80 MG (ON THE EIGHTH DAY)
     Route: 065

REACTIONS (1)
  - Anaphylactic shock [Recovered/Resolved]
